FAERS Safety Report 6413033-0 (Version None)
Quarter: 2009Q4

REPORT INFORMATION
  Report Type: 
  Country: None (occurrence: None)
  Receive Date: 20091023
  Receipt Date: 20091023
  Transmission Date: 20100525
  Serious: No
  Sender: FDA-Public Use
  Company Number: None

PATIENT
  Sex: Female
  Weight: 82.5547 kg

DRUGS (1)
  1. ZICAM HOMEOPATHIC UNKNOWN UNKNOWN [Suspect]
     Indication: NASOPHARYNGITIS
     Dosage: ONE SPRAY ONE TIME NASAL
     Route: 045
     Dates: start: 20091021, end: 20091021

REACTIONS (3)
  - ANOSMIA [None]
  - BURNING SENSATION [None]
  - EXPIRED DRUG ADMINISTERED [None]
